FAERS Safety Report 20852380 (Version 2)
Quarter: 2022Q3

REPORT INFORMATION
  Report Type: Spontaneous
  Country: BR (occurrence: None)
  Receive Date: 20220520
  Receipt Date: 20220708
  Transmission Date: 20221027
  Serious: Yes (Hospitalization, Other)
  Sender: FDA-Public Use
  Company Number: BR-Merck Healthcare KGaA-9322653

PATIENT
  Age: 82 Year
  Sex: Female

DRUGS (5)
  1. GLIFAGE [Suspect]
     Active Substance: METFORMIN HYDROCHLORIDE
     Indication: Glucose tolerance impaired
     Dosage: STARTED ON 20 TO 10 YEARS AGO
     Route: 048
  2. ATENOLOL [Concomitant]
     Active Substance: ATENOLOL
     Indication: Hypertension
     Dosage: LABORATORY: SANDOZ, APPROXIMATELY 20 YEARS AGO, SHE DID NOT KNOW EXACT DATES
  3. AMLODIPINE [Concomitant]
     Active Substance: AMLODIPINE BESYLATE
     Indication: Hypertension
     Dosage: LABORATORY: SANDOZ, APPROXIMATELY 20 YEARS AGO, SHE DOES NOT KNOW EXACT DATES
  4. ENALAPRIL MALEATE [Concomitant]
     Active Substance: ENALAPRIL MALEATE
     Indication: Hypertension
     Dosage: LABORATORY: CIMED-GENERIC. APPROXIMATELY 20 YEARS AGO, SHE DID NOT KNOW EXACT DATES
  5. FUROSEMIDE [Concomitant]
     Active Substance: FUROSEMIDE
     Indication: Hypertension
     Dosage: LABORATORY:GENERIC-NEO QUIMICA?APPROXIMATELY 2 YEARS AGO, SHE DID NOT KNOW THE EXACT DATES

REACTIONS (5)
  - Immunodeficiency [Unknown]
  - Herpes virus infection [Recovered/Resolved]
  - Pain in extremity [Not Recovered/Not Resolved]
  - Depression [Unknown]
  - Blood uric acid increased [Not Recovered/Not Resolved]

NARRATIVE: CASE EVENT DATE: 20220501
